FAERS Safety Report 10711341 (Version 1)
Quarter: 2015Q1

REPORT INFORMATION
  Report Type: Spontaneous
  Country: AR (occurrence: AR)
  Receive Date: 20150114
  Receipt Date: 20150114
  Transmission Date: 20150721
  Serious: Yes (Other)
  Sender: FDA-Public Use
  Company Number: AR-PFIZER INC-2015012686

PATIENT
  Age: 52 Year

DRUGS (1)
  1. SUNITINIB MALATE [Suspect]
     Active Substance: SUNITINIB MALATE
     Dosage: 50 MG, DAILY (FOURTH CYCLE)

REACTIONS (1)
  - Blood triglycerides increased [Unknown]
